FAERS Safety Report 4884651-6 (Version None)
Quarter: 2005Q4

REPORT INFORMATION
  Report Type: 
  Country: None (occurrence: None)
  Receive Date: 20051201
  Receipt Date: 20050913
  Transmission Date: 20060501
  Serious: No
  Sender: FDA-Public Use
  Company Number: 2005PV002049

PATIENT
  Age: 47 Year
  Sex: Female
  Weight: 122.4712 kg

DRUGS (7)
  1. BYETTA [Suspect]
     Indication: DIABETES MELLITUS NON-INSULIN-DEPENDENT
     Dosage: SEE IMAGE
     Route: 058
     Dates: start: 20050801, end: 20050906
  2. BYETTA [Suspect]
     Indication: DIABETES MELLITUS NON-INSULIN-DEPENDENT
     Dosage: SEE IMAGE
     Route: 058
     Dates: start: 20050907
  3. REMICADE [Concomitant]
  4. VICODIN [Concomitant]
  5. NAPROXEN [Concomitant]
  6. FOSAMAX [Concomitant]
  7. ACTONEL [Concomitant]

REACTIONS (2)
  - BLOOD GLUCOSE INCREASED [None]
  - NAUSEA [None]
